FAERS Safety Report 15233353 (Version 1)
Quarter: 2018Q3

REPORT INFORMATION
  Report Type: Spontaneous
  Country: FR (occurrence: FR)
  Receive Date: 20180802
  Receipt Date: 20180802
  Transmission Date: 20181010
  Serious: Yes (Life-Threatening, Other)
  Sender: FDA-Public Use
  Company Number: FR-MYLANLABS-2018M1056568

PATIENT
  Age: 65 Year
  Sex: Female

DRUGS (2)
  1. PACLITAXEL. [Suspect]
     Active Substance: PACLITAXEL
     Indication: OVARIAN CANCER
     Dosage: 126 MG, QW
     Route: 041
     Dates: start: 20180219, end: 20180321
  2. CARBOPLATIN. [Interacting]
     Active Substance: CARBOPLATIN
     Indication: OVARIAN CANCER
     Dosage: 420 MG, Q3W
     Route: 041
     Dates: start: 20180219, end: 20180315

REACTIONS (4)
  - Drug interaction [Unknown]
  - Neutropenia [Not Recovered/Not Resolved]
  - Platelet count decreased [Not Recovered/Not Resolved]
  - Anaemia [Not Recovered/Not Resolved]

NARRATIVE: CASE EVENT DATE: 20180315
